FAERS Safety Report 26098521 (Version 1)
Quarter: 2025Q4

REPORT INFORMATION
  Report Type: Spontaneous
  Country: JP (occurrence: JP)
  Receive Date: 20251127
  Receipt Date: 20251127
  Transmission Date: 20260118
  Serious: Yes (Death)
  Sender: MERCK SHARP & DOHME LLC
  Company Number: JP-009507513-2354404

PATIENT
  Age: 7 Decade
  Sex: Male
  Weight: 75.6 kg

DRUGS (3)
  1. KEYTRUDA [Suspect]
     Active Substance: PEMBROLIZUMAB
     Indication: Clear cell renal cell carcinoma
     Dosage: START DATE: MARCH OF YEAR X ?STOP DATE: SEPTEMBER OF YEAR (X+1) (AFTER 18 MONTHS)
  2. LENVATINIB [Suspect]
     Active Substance: LENVATINIB
     Indication: Clear cell renal cell carcinoma
     Dosage: START DATE: MARCH OF YEAR X?SUSPENSION: MAY OF YEAR (X+1) (AFTER 14 MONTHS)
  3. LENVATINIB [Suspect]
     Active Substance: LENVATINIB
     Indication: Clear cell renal cell carcinoma
     Dosage: START DATE: JUNE OF YEAR X (AFTER 15 MONTHS)?STOP DATE: SEPTEMBER OF YEAR (X+1) (AFTER 18 MONTHS)

REACTIONS (3)
  - Acute myocardial infarction [Fatal]
  - Diarrhoea [Unknown]
  - Malaise [Unknown]
